FAERS Safety Report 19770044 (Version 2)
Quarter: 2021Q3

REPORT INFORMATION
  Report Type: Spontaneous
  Country: US (occurrence: US)
  Receive Date: 20210831
  Receipt Date: 20210904
  Transmission Date: 20211014
  Serious: No
  Sender: FDA-Public Use
  Company Number: US-UNITED THERAPEUTICS-UNT-2021-016994

PATIENT
  Age: 67 Year
  Sex: Male

DRUGS (3)
  1. TYVASO [Suspect]
     Active Substance: TREPROSTINIL
     Indication: PULMONARY ARTERIAL HYPERTENSION
     Dosage: UNK
     Dates: start: 20210818
  2. TYVASO [Suspect]
     Active Substance: TREPROSTINIL
     Dosage: 54?72 ?G, QID
     Dates: start: 202108, end: 20210825
  3. TYVASO [Suspect]
     Active Substance: TREPROSTINIL
     Dosage: 24 ?G, QID
     Dates: start: 2021

REACTIONS (7)
  - Product label confusion [Unknown]
  - Nausea [Unknown]
  - Cough [Unknown]
  - Respiration abnormal [Unknown]
  - Oxygen consumption increased [Unknown]
  - Productive cough [Unknown]
  - Product dose omission issue [Unknown]

NARRATIVE: CASE EVENT DATE: 202108
